FAERS Safety Report 6229375-8 (Version None)
Quarter: 2009Q2

REPORT INFORMATION
  Report Type: 
  Country: None (occurrence: None)
  Receive Date: 20090615
  Receipt Date: 20081111
  Transmission Date: 20091009
  Serious: Yes (Hospitalization)
  Sender: FDA-Public Use
  Company Number: MY-JNJFOC-20081002575

PATIENT
  Sex: Female

DRUGS (22)
  1. GOLIMUMAB [Suspect]
     Route: 042
  2. GOLIMUMAB [Suspect]
     Route: 042
  3. GOLIMUMAB [Suspect]
     Route: 042
  4. GOLIMUMAB [Suspect]
     Route: 042
  5. GOLIMUMAB [Suspect]
     Route: 042
  6. GOLIMUMAB [Suspect]
     Route: 042
  7. GOLIMUMAB [Suspect]
     Indication: RHEUMATOID ARTHRITIS
     Route: 042
  8. PLACEBO [Suspect]
     Indication: RHEUMATOID ARTHRITIS
     Dosage: WEEK 16 (PLACEBO DOSE)
     Route: 042
  9. METHOTREXATE [Suspect]
     Route: 048
  10. METHOTREXATE [Suspect]
     Route: 048
  11. METHOTREXATE [Suspect]
     Route: 048
  12. METHOTREXATE [Suspect]
     Route: 048
  13. METHOTREXATE [Suspect]
     Route: 048
  14. METHOTREXATE [Suspect]
     Indication: RHEUMATOID ARTHRITIS
     Route: 048
  15. LOSEC [Concomitant]
     Route: 048
  16. CELECOXIB [Concomitant]
     Indication: RHEUMATOID ARTHRITIS
     Route: 048
  17. FERROUS FUMERATE [Concomitant]
     Route: 048
  18. FOLIC ACID [Concomitant]
     Route: 042
  19. PARACETAMOL [Concomitant]
     Route: 048
  20. PREDNISOLONE [Concomitant]
     Indication: RHEUMATOID ARTHRITIS
     Route: 048
  21. CALTRATE [Concomitant]
     Route: 048
  22. MULTI-VITAMINS [Concomitant]
     Route: 048

REACTIONS (2)
  - BRONCHIECTASIS [None]
  - PLEURAL EFFUSION [None]
